FAERS Safety Report 9034200 (Version 1)
Quarter: 2013Q1

REPORT INFORMATION
  Report Type: Spontaneous
  Country: US (occurrence: None)
  Receive Date: 20130116
  Receipt Date: 20130116
  Transmission Date: 20140127
  Serious: No
  Sender: FDA-Public Use
  Company Number: None

PATIENT
  Age: 67 Year
  Sex: Female
  Weight: 67.13 kg

DRUGS (2)
  1. VANCOMYCIN [Suspect]
     Route: 042
     Dates: start: 20121106, end: 20121113
  2. VANCOMYCIN [Suspect]
     Route: 042
     Dates: start: 20121106, end: 20121113

REACTIONS (3)
  - Urticaria [None]
  - Rash [None]
  - Pruritus [None]
